FAERS Safety Report 6898553-7 (Version None)
Quarter: 2010Q3

REPORT INFORMATION
  Report Type: 
  Country: None (occurrence: None)
  Receive Date: 20100802
  Receipt Date: 20071102
  Transmission Date: 20110219
  Serious: No
  Sender: FDA-Public Use
  Company Number: US-PFIZER INC-2007075181

PATIENT
  Sex: Male
  Weight: 77.1 kg

DRUGS (6)
  1. LYRICA [Suspect]
     Indication: PAIN
     Route: 048
     Dates: start: 20070719, end: 20070828
  2. LYRICA [Suspect]
     Indication: NECK PAIN
  3. VIAGRA [Concomitant]
     Route: 048
  4. WARFARIN SODIUM [Concomitant]
     Route: 048
  5. TOPROL-XL [Concomitant]
     Indication: HEART RATE IRREGULAR
     Route: 048
  6. TYLENOL [Concomitant]
     Route: 048

REACTIONS (1)
  - SEXUAL DYSFUNCTION [None]
